FAERS Safety Report 8481930-0 (Version None)
Quarter: 2012Q2

REPORT INFORMATION
  Report Type: 
  Country: None (occurrence: None)
  Receive Date: 20120626
  Receipt Date: 20120626
  Transmission Date: 20120825
  Serious: Yes (Disabling, Other)
  Sender: FDA-Public Use
  Company Number: None

PATIENT
  Age: 41 Year
  Sex: Female
  Weight: 97.5234 kg

DRUGS (1)
  1. LYRICA [Suspect]
     Indication: NEURALGIA
     Dosage: 150 MG X DAY

REACTIONS (7)
  - FALL [None]
  - CONCUSSION [None]
  - DYSARTHRIA [None]
  - MUSCLE TWITCHING [None]
  - CONFUSIONAL STATE [None]
  - MUSCULAR WEAKNESS [None]
  - DYSKINESIA [None]
